FAERS Safety Report 10160536 (Version 2)
Quarter: 2014Q2

REPORT INFORMATION
  Report Type: Spontaneous
  Country: US (occurrence: US)
  Receive Date: 20140508
  Receipt Date: 20140605
  Transmission Date: 20141212
  Serious: No
  Sender: FDA-Public Use
  Company Number: US-009507513-1405USA000435

PATIENT
  Age: 79 Year
  Sex: Female

DRUGS (12)
  1. OXYTROL FOR WOMEN [Suspect]
     Indication: HYPERTONIC BLADDER
     Dosage: EVERY 4 DAYS
     Route: 062
     Dates: start: 201310
  2. COZAAR [Concomitant]
     Dosage: 2 PILLS, 1 AM, 1 PM
     Route: 048
  3. METOPROLOL TARTRATE [Concomitant]
     Dosage: 2 PILLS, 1AM, 1 PM
     Route: 048
  4. CLARITIN [Concomitant]
     Dosage: 1 PILL, AM
     Route: 048
  5. PRILOSEC [Concomitant]
     Dosage: 1 DF, AM
     Route: 048
  6. ASPIRIN [Concomitant]
     Dosage: 1 PILL, NOON
     Route: 048
  7. CRESTOR [Concomitant]
     Dosage: 1/2 PILL, NOON
     Route: 048
  8. WARFARIN [Concomitant]
     Dosage: 1 PILL, NOON
     Route: 048
  9. AMLODIPINE [Concomitant]
     Dosage: 1 PILL, PM
     Route: 048
  10. Q-10 [Concomitant]
     Dosage: 1 PILL, PM
     Route: 048
  11. POTASSIUM GLUCONATE [Concomitant]
     Dosage: 1 PILL, NOON
     Route: 048
  12. HYDROCODONE [Concomitant]
     Indication: PAIN MANAGEMENT
     Dosage: 5/325, 1 TABLET EVERY 6 HOURS
     Route: 048

REACTIONS (6)
  - Drug effect incomplete [Unknown]
  - Application site pain [Not Recovered/Not Resolved]
  - Application site pruritus [Not Recovered/Not Resolved]
  - Application site rash [Not Recovered/Not Resolved]
  - Hypersensitivity [Not Recovered/Not Resolved]
  - Wrong technique in drug usage process [Unknown]
